FAERS Safety Report 23428948 (Version 1)
Quarter: 2024Q1

REPORT INFORMATION
  Report Type: Spontaneous
  Country: ES (occurrence: ES)
  Receive Date: 20240122
  Receipt Date: 20240122
  Transmission Date: 20240410
  Serious: Yes (Hospitalization, Other)
  Sender: FDA-Public Use
  Company Number: ES-SA-2024SA015227

PATIENT
  Age: 64 Year
  Sex: Female
  Weight: 61.1 kg

DRUGS (6)
  1. LEMTRADA [Suspect]
     Active Substance: ALEMTUZUMAB
     Indication: T-cell prolymphocytic leukaemia
     Dosage: 3 MG
     Route: 042
     Dates: start: 20230823, end: 20230823
  2. LEMTRADA [Suspect]
     Active Substance: ALEMTUZUMAB
     Dosage: 10 MG
     Route: 042
     Dates: start: 20230824, end: 20230824
  3. LEMTRADA [Suspect]
     Active Substance: ALEMTUZUMAB
     Dosage: 30 MG
     Route: 042
     Dates: start: 20230825, end: 20230825
  4. LEMTRADA [Suspect]
     Active Substance: ALEMTUZUMAB
     Dosage: 30 MG
     Route: 042
     Dates: start: 20230828, end: 20230828
  5. LEMTRADA [Suspect]
     Active Substance: ALEMTUZUMAB
     Dosage: UNK
     Dates: start: 20230906, end: 20231110
  6. CYCLOPHOSPHAMIDE [Suspect]
     Active Substance: CYCLOPHOSPHAMIDE
     Indication: T-cell prolymphocytic leukaemia
     Dosage: 337 MG, QD, ADMINISTERED IN 1 HOUR ON DAYS 10,11,12,13 AND 14/08/23
     Route: 042
     Dates: start: 20230810, end: 20230814

REACTIONS (3)
  - Ventricular dysfunction [Recovering/Resolving]
  - Cytomegalovirus infection reactivation [Recovered/Resolved]
  - Product use in unapproved indication [Unknown]

NARRATIVE: CASE EVENT DATE: 20230823
